FAERS Safety Report 7381374-9 (Version None)
Quarter: 2011Q1

REPORT INFORMATION
  Report Type: 
  Country: None (occurrence: None)
  Receive Date: 20110321
  Receipt Date: 20110304
  Transmission Date: 20110831
  Serious: Yes (Disabling)
  Sender: FDA-Public Use
  Company Number: AUR-APL-2011-00866

PATIENT
  Age: 75 Year
  Sex: Female
  Weight: 64 kg

DRUGS (1)
  1. ALENDRONATE SODIUM [Suspect]
     Indication: OSTEOPOROSIS
     Dosage: 70MG - ORAL
     Route: 048
     Dates: start: 20110129, end: 20110213

REACTIONS (3)
  - PAIN IN JAW [None]
  - ARTHRALGIA [None]
  - MASTICATION DISORDER [None]
